FAERS Safety Report 10602085 (Version 1)
Quarter: 2014Q4

REPORT INFORMATION
  Report Type: Spontaneous
  Country: AU (occurrence: None)
  Receive Date: 20141120
  Receipt Date: 20141120
  Transmission Date: 20150529
  Serious: Yes (Life-Threatening, Hospitalization)
  Sender: FDA-Public Use
  Company Number: FK201405215

PATIENT
  Age: 8 Year
  Sex: Male

DRUGS (4)
  1. VINCRISTINE (MANUFACTURER UNKNOWN) (VINCRISTINE SULFATE) (VINCRISTINE SULFATE)? [Suspect]
     Active Substance: VINCRISTINE
     Indication: B PRECURSOR TYPE ACUTE LEUKAEMIA
  2. DEXAMETHASONE INJECTION (MANUFACTURER UNKNOWN) (DEXAMETHASONE SODIUM PHOSPHATE) (DEXAMETHASONE SODIUM PHOSPHATE)? [Suspect]
     Active Substance: DEXAMETHASONE
     Indication: B PRECURSOR TYPE ACUTE LEUKAEMIA
  3. METHOTREXATE (MANUFACTURER UNKNOWN) (METHOTREXATE) (METHOTREXATE) [Suspect]
     Active Substance: METHOTREXATE
     Indication: B PRECURSOR TYPE ACUTE LEUKAEMIA
     Route: 037
  4. PEG-ASPARAGINASE (PEGASPARGASE) [Suspect]
     Active Substance: PEGASPARGASE
     Indication: B PRECURSOR TYPE ACUTE LEUKAEMIA

REACTIONS (11)
  - Hemianopia homonymous [None]
  - Brain abscess [None]
  - Cholangitis [None]
  - Cholecystitis [None]
  - Bacterial infection [None]
  - Delirium [None]
  - Headache [None]
  - Bacillus bacteraemia [None]
  - Brain oedema [None]
  - Neutropenia [None]
  - Abdominal pain upper [None]

NARRATIVE: CASE EVENT DATE: 20141114
